FAERS Safety Report 8190293-X (Version None)
Quarter: 2012Q1

REPORT INFORMATION
  Report Type: 
  Country: None (occurrence: None)
  Receive Date: 20120307
  Receipt Date: 20120224
  Transmission Date: 20120608
  Serious: No
  Sender: FDA-Public Use
  Company Number: US-ELI_LILLY_AND_COMPANY-US201202007898

PATIENT
  Age: 43 Year
  Sex: Female
  Weight: 71.202 kg

DRUGS (4)
  1. ADCIRCA [Suspect]
     Indication: PULMONARY HYPERTENSION
     Dosage: UNK
  2. REMODULIN [Concomitant]
     Indication: PULMONARY HYPERTENSION
     Dosage: 32 A?G/KG, OTHER
     Route: 058
     Dates: start: 20110920
  3. COUMADIN [Concomitant]
  4. DIURETICS [Concomitant]

REACTIONS (3)
  - INFUSION SITE PUSTULE [None]
  - VISUAL IMPAIRMENT [None]
  - ALOPECIA [None]
